FAERS Safety Report 9135348 (Version 1)
Quarter: 2013Q1

REPORT INFORMATION
  Report Type: Spontaneous
  Country: US (occurrence: US)
  Receive Date: 20130304
  Receipt Date: 20130304
  Transmission Date: 20140127
  Serious: No
  Sender: FDA-Public Use
  Company Number: US-BAYER-2013-026416

PATIENT
  Age: 35 Year
  Sex: Female

DRUGS (7)
  1. NIFEDIPINE [Suspect]
     Indication: BLOOD PRESSURE INCREASED
  2. BETAMETHASONE [Concomitant]
     Indication: FOETAL GROWTH RESTRICTION
  3. MAGNESIUM SULFATE [Concomitant]
     Indication: CONVULSION PROPHYLAXIS
  4. MONOCLONAL ANTIBODIES [Concomitant]
     Dosage: 1200 MG, UNK
  5. MENINGOCOCCAL VACCINES [Concomitant]
  6. LABETALOL [Concomitant]
     Indication: PULMONARY OEDEMA
  7. LASIX [Concomitant]
     Indication: PULMONARY OEDEMA

REACTIONS (1)
  - Exposure during pregnancy [None]
